FAERS Safety Report 19676020 (Version 8)
Quarter: 2023Q2

REPORT INFORMATION
  Report Type: Report from Study
  Country: FR (occurrence: FR)
  Receive Date: 20210809
  Receipt Date: 20230517
  Transmission Date: 20230722
  Serious: Yes (Life-Threatening, Hospitalization, Other)
  Sender: FDA-Public Use
  Company Number: FR-ABBVIE-21K-056-3777284-00

PATIENT
  Age: 56 Year
  Sex: Male
  Weight: 100 kg

DRUGS (19)
  1. METHOTREXATE [Suspect]
     Active Substance: METHOTREXATE
     Indication: Psoriasis
     Dosage: 15 MILLIGRAM, QW, (15 MG, WE)
     Route: 048
     Dates: start: 2013, end: 2013
  2. ACITRETIN [Suspect]
     Active Substance: ACITRETIN
     Indication: Psoriasis
     Dosage: UNK
     Route: 065
  3. ACITRETIN [Suspect]
     Active Substance: ACITRETIN
     Dosage: 80 MILLIGRAM, QW, (80 MG, WE)
     Route: 065
     Dates: start: 20130531, end: 20130531
  4. HUMIRA [Suspect]
     Active Substance: ADALIMUMAB
     Indication: Psoriasis
     Dosage: 80 MILLIGRAM, QW, (80 MG, Z (EVERY WEEK)
     Route: 058
     Dates: start: 20130531, end: 20130630
  5. HUMIRA [Suspect]
     Active Substance: ADALIMUMAB
     Dosage: 40 MG, BIWEEKLY, (40 MG (ONCE AT 2 WEEK)
     Route: 058
     Dates: start: 20130630, end: 20160928
  6. CLOBETASOL PROPIONATE [Suspect]
     Active Substance: CLOBETASOL PROPIONATE
     Indication: Psoriasis
     Dosage: UNK
     Route: 065
     Dates: start: 20161219
  7. CLOBETASOL PROPIONATE [Suspect]
     Active Substance: CLOBETASOL PROPIONATE
     Dosage: UNK
     Route: 065
     Dates: start: 20180108
  8. GLYCERIN\MINERAL OIL\PETROLATUM [Suspect]
     Active Substance: GLYCERIN\MINERAL OIL\PETROLATUM
     Indication: Psoriasis
     Dosage: UNK
     Route: 065
     Dates: start: 20161219
  9. STELARA [Suspect]
     Active Substance: USTEKINUMAB
     Indication: Psoriasis
     Dosage: 45 MG, Q4WEEK, (45 MG, Z (ONCE EVERY 4 WEEKS)
     Route: 058
     Dates: start: 20170126, end: 20170226
  10. STELARA [Suspect]
     Active Substance: USTEKINUMAB
     Dosage: 45 MG, Q12WEEK, (45 MG, ONCE EVERY 12 WEEKS)
     Route: 058
     Dates: start: 20170226, end: 20180110
  11. STELARA [Suspect]
     Active Substance: USTEKINUMAB
     Dosage: 45 MILLIGRAM, Q14 WEEK
     Route: 058
     Dates: start: 20180110, end: 20180418
  12. DAIVOBET [Suspect]
     Active Substance: BETAMETHASONE DIPROPIONATE\CALCIPOTRIENE
     Indication: Psoriasis
     Dosage: UNK
     Route: 065
     Dates: start: 20161216
  13. DAIVOBET [Suspect]
     Active Substance: BETAMETHASONE DIPROPIONATE\CALCIPOTRIENE
     Dosage: UNK
     Route: 065
     Dates: start: 20161219
  14. DAIVOBET [Suspect]
     Active Substance: BETAMETHASONE DIPROPIONATE\CALCIPOTRIENE
     Dosage: UNK 08-APR-2019
     Route: 065
  15. CICLOPIROX OLAMINE [Suspect]
     Active Substance: CICLOPIROX OLAMINE
     Indication: Psoriasis
     Dosage: UNK
     Route: 065
     Dates: start: 20161219
  16. CICLOPIROX OLAMINE [Suspect]
     Active Substance: CICLOPIROX OLAMINE
     Dosage: UNK
     Route: 065
     Dates: start: 20180108
  17. STELARA [Suspect]
     Active Substance: USTEKINUMAB
     Indication: Psoriasis
     Dosage: 45 MG, 14 WEEKS, (45 MG, ONCE EVERY 14 WEEKS)
     Route: 048
     Dates: start: 20180110
  18. TALTZ [Suspect]
     Active Substance: IXEKIZUMAB
     Indication: Myocardial infarction
     Dosage: 160 MG, BIWEEKLY, (160 MG ONCE EVERY 2 WEEK) START DATE 08-APR-2019
     Route: 058
  19. TALTZ [Suspect]
     Active Substance: IXEKIZUMAB
     Indication: Psoriasis

REACTIONS (3)
  - Myocardial infarction [Recovered/Resolved]
  - Angioplasty [Recovered/Resolved]
  - Type 2 diabetes mellitus [Recovering/Resolving]

NARRATIVE: CASE EVENT DATE: 20180101
